FAERS Safety Report 4844415-6 (Version None)
Quarter: 2005Q4

REPORT INFORMATION
  Report Type: 
  Country: None (occurrence: None)
  Receive Date: 20051202
  Receipt Date: 20051123
  Transmission Date: 20060501
  Serious: Yes (Hospitalization, Other)
  Sender: FDA-Public Use
  Company Number: US-MERCK-0511USA04220

PATIENT
  Age: 67 Year
  Sex: Male
  Weight: 68 kg

DRUGS (5)
  1. VIOXX [Suspect]
     Indication: ARTHRITIS
     Route: 048
     Dates: start: 20010803, end: 20040301
  2. VASERETIC [Concomitant]
     Route: 065
  3. LIPITOR [Concomitant]
     Route: 065
  4. FUROSEMIDE [Concomitant]
     Route: 065
  5. ASPIRIN [Concomitant]
     Route: 065

REACTIONS (2)
  - CAROTID ARTERY DISEASE [None]
  - MYOCARDIAL INFARCTION [None]
